FAERS Safety Report 6249133-8 (Version None)
Quarter: 2009Q2

REPORT INFORMATION
  Report Type: 
  Country: None (occurrence: None)
  Receive Date: 20090629
  Receipt Date: 20090624
  Transmission Date: 20091009
  Serious: Yes (Other)
  Sender: FDA-Public Use
  Company Number: US-ALLERGAN-0908965US

PATIENT
  Sex: Female

DRUGS (2)
  1. REFRESH LUBRICANT OPHTHALMIC SOLUTION [Suspect]
     Indication: DRUG USE FOR UNKNOWN INDICATION
     Dosage: UNK, UNKNOWN
     Route: 047
  2. OPTIVE [Suspect]
     Indication: DRUG USE FOR UNKNOWN INDICATION
     Dosage: UNK, UNKNOWN
     Route: 047

REACTIONS (13)
  - BLINDNESS [None]
  - BURNING SENSATION [None]
  - CORNEAL DISORDER [None]
  - CORNEAL EROSION [None]
  - CORNEAL SCAR [None]
  - DISCOMFORT [None]
  - EYE IRRITATION [None]
  - HERPES OPHTHALMIC [None]
  - INJURY CORNEAL [None]
  - OCULAR HYPERAEMIA [None]
  - PAIN [None]
  - REACTION TO PRESERVATIVES [None]
  - SUPERFICIAL INJURY OF EYE [None]
